FAERS Safety Report 8585218-9 (Version None)
Quarter: 2012Q3

REPORT INFORMATION
  Report Type: 
  Country: None (occurrence: None)
  Receive Date: 20120810
  Receipt Date: 20120808
  Transmission Date: 20120928
  Serious: Yes (Hospitalization, Other)
  Sender: FDA-Public Use
  Company Number: PHHY2012CA026066

PATIENT
  Sex: Female

DRUGS (21)
  1. DOXYCYCLINE [Concomitant]
     Dosage: 0.067 MG, UNK
  2. FLOVENT [Concomitant]
     Dosage: UNK UKN, UNK
  3. ASPIRIN [Concomitant]
     Dosage: 80 MG, UNK
  4. ATORVASTATIN [Concomitant]
     Dosage: UNK UKN, UNK
  5. SANDOSTATIN LAR [Suspect]
     Indication: ANAEMIA
     Dosage: 20 MG, QMO
     Route: 030
     Dates: start: 20090101
  6. OSCAL 500-D [Concomitant]
     Dosage: UNK UKN, BID
  7. IRON [Concomitant]
     Dosage: UNK UKN, UNK
  8. ACTONEL [Concomitant]
     Dosage: UNK UKN, UNK
  9. SENNA-MINT WAF [Concomitant]
     Dosage: UNK UKN, UNK
  10. PERINDOPRIL ERBUMINE [Concomitant]
     Dosage: UNK UKN, UNK
  11. PANTOPRAZOLE SODIUM [Concomitant]
     Dosage: 40 MG DAILY
  12. SANDOSTATIN LAR [Suspect]
     Dosage: 30 MG, QMO
     Route: 030
  13. NITRO-DUR [Concomitant]
     Dosage: UNK UKN, UNK
  14. COLACE [Concomitant]
     Dosage: UNK UKN, UNK
  15. LASIX [Concomitant]
     Dosage: UNK UKN, UNK
  16. NOVOGESIC [Concomitant]
     Dosage: UNK UKN, DAILY
  17. ALDACTONE [Concomitant]
     Dosage: UNK UKN, UNK
  18. METOPROLOL TARTRATE [Concomitant]
     Dosage: UNK UKN, UNK
  19. COUMADIN [Concomitant]
     Dosage: UNK UKN, UNK
  20. MIRTAZAPINE [Concomitant]
     Dosage: UNK UKN, UNK (30 DAILY)
  21. ATIVAN [Concomitant]
     Dosage: 1 MG, UNK

REACTIONS (7)
  - MALAISE [None]
  - PALPITATIONS [None]
  - GASTROENTERITIS [None]
  - DYSPNOEA [None]
  - MITRAL VALVE DISEASE MIXED [None]
  - FATIGUE [None]
  - PULMONARY CONGESTION [None]
